FAERS Safety Report 5017939-9 (Version None)
Quarter: 2006Q2

REPORT INFORMATION
  Report Type: 
  Country: None (occurrence: None)
  Receive Date: 20060605
  Receipt Date: 20060601
  Transmission Date: 20061013
  Serious: Yes (Death, Hospitalization)
  Sender: FDA-Public Use
  Company Number: MX-GLAXOSMITHKLINE-A0607643A

PATIENT
  Age: 86 Year
  Sex: Female

DRUGS (5)
  1. AROPAX [Suspect]
     Indication: ANXIETY
     Dosage: 10MG PER DAY
     Route: 048
     Dates: start: 20050701, end: 20060125
  2. CODIOVAN [Concomitant]
  3. DIGOXIN [Concomitant]
  4. ALPRAZOLAM [Concomitant]
  5. HALCION [Concomitant]
     Dosage: .5TAB PER DAY
     Route: 048

REACTIONS (4)
  - DEHYDRATION [None]
  - DIARRHOEA [None]
  - MYOCARDIAL INFARCTION [None]
  - VOMITING [None]
